FAERS Safety Report 19148091 (Version 1)
Quarter: 2021Q2

REPORT INFORMATION
  Report Type: Spontaneous
  Country: JP (occurrence: JP)
  Receive Date: 20210417
  Receipt Date: 20210417
  Transmission Date: 20210717
  Serious: Yes (Hospitalization)
  Sender: FDA-Public Use
  Company Number: JP-ROCHE-2812219

PATIENT
  Age: 8 Decade

DRUGS (4)
  1. ETOPOSIDE. [Suspect]
     Active Substance: ETOPOSIDE
     Indication: SMALL CELL LUNG CANCER
     Dosage: AMOUNT OF 1 ONCE ADMINISTRATION: 100 (UNIT UNCERTAINTY)
     Route: 041
  2. CARBOPLATIN. [Concomitant]
     Active Substance: CARBOPLATIN
     Indication: SMALL CELL LUNG CANCER
     Dosage: DOSAGE IS UNCERTAIN.
     Route: 041
  3. ETOPOSIDE. [Suspect]
     Active Substance: ETOPOSIDE
     Dosage: AMOUNT OF 1 ONCE ADMINISTRATION: 80 (UNIT UNCERTAINTY)
     Route: 041
  4. TECENTRIQ [Suspect]
     Active Substance: ATEZOLIZUMAB
     Indication: SMALL CELL LUNG CANCER
     Dosage: DOSAGE IS UNCERTAIN.
     Route: 041

REACTIONS (1)
  - Gastrointestinal disorder [Recovering/Resolving]
